FAERS Safety Report 10437632 (Version 1)
Quarter: 2014Q3

REPORT INFORMATION
  Report Type: Spontaneous
  Country: US (occurrence: US)
  Receive Date: 20140908
  Receipt Date: 20140908
  Transmission Date: 20150326
  Serious: No
  Sender: FDA-Public Use
  Company Number: US-BRISTOL-MYERS SQUIBB COMPANY-20978771

PATIENT
  Age: 70 Year
  Sex: Female

DRUGS (14)
  1. GLIPIZIDE. [Concomitant]
     Active Substance: GLIPIZIDE
  2. SYNTHROID [Concomitant]
     Active Substance: LEVOTHYROXINE SODIUM
  3. ASPIRIN. [Concomitant]
     Active Substance: ASPIRIN
  4. ABILIFY [Suspect]
     Active Substance: ARIPIPRAZOLE
  5. CALCITRIOL. [Concomitant]
     Active Substance: CALCITRIOL
  6. CALCIUM [Concomitant]
     Active Substance: CALCIUM
  7. SODIUM BICARBONATE. [Concomitant]
     Active Substance: SODIUM BICARBONATE
  8. FUROSEMIDE. [Concomitant]
     Active Substance: FUROSEMIDE
  9. TRAZODONE HYDROCHLORIDE. [Concomitant]
     Active Substance: TRAZODONE HYDROCHLORIDE
  10. DESLORATADINE. [Concomitant]
     Active Substance: DESLORATADINE
  11. NEXIUM [Concomitant]
     Active Substance: ESOMEPRAZOLE MAGNESIUM
  12. L-THYROXINE [Concomitant]
     Active Substance: LEVOTHYROXINE
  13. PREMARIN [Concomitant]
     Active Substance: ESTROGENS, CONJUGATED
  14. METOPROLOL [Concomitant]
     Active Substance: METOPROLOL

REACTIONS (1)
  - Bradykinesia [Unknown]
